FAERS Safety Report 9499510 (Version 1)
Quarter: 2013Q1

REPORT INFORMATION
  Report Type: Spontaneous
  Country: US (occurrence: None)
  Receive Date: 20130116
  Receipt Date: 20130116
  Transmission Date: 20140127
  Serious: No
  Sender: FDA-Public Use
  Company Number: 1204USA01898

PATIENT
  Age: 20 Year
  Sex: Female

DRUGS (1)
  1. INVANZ [Suspect]
     Indication: LYME DISEASE
     Route: 042
     Dates: start: 20120405, end: 20120411

REACTIONS (2)
  - Overdose [None]
  - Diarrhoea [None]
